FAERS Safety Report 12372964 (Version 1)
Quarter: 2016Q2

REPORT INFORMATION
  Report Type: Spontaneous
  Country: US (occurrence: US)
  Receive Date: 20160516
  Receipt Date: 20160516
  Transmission Date: 20160815
  Serious: Yes (Other)
  Sender: FDA-Public Use
  Company Number: US-MDT-ADR-2016-00022

PATIENT
  Age: 28 Year
  Sex: Female

DRUGS (5)
  1. MORPHINE SULFATE IR [Suspect]
     Active Substance: MORPHINE SULFATE
     Indication: BREAKTHROUGH PAIN
     Dosage: 15MG THREE TIMES DAILY AS NEEDED
     Route: 048
  2. DILAUDID [Suspect]
     Active Substance: HYDROMORPHONE HYDROCHLORIDE
     Dosage: 2.8509
     Route: 037
  3. TIZANIDINE. [Suspect]
     Active Substance: TIZANIDINE
     Route: 048
  4. COUMADIN [Suspect]
     Active Substance: WARFARIN SODIUM
     Indication: THROMBOSIS PROPHYLAXIS
  5. BACLOFEN. [Suspect]
     Active Substance: BACLOFEN
     Dosage: 2850.9MCG/DAY
     Route: 037

REACTIONS (2)
  - Muscle spasticity [Unknown]
  - Pain [Unknown]

NARRATIVE: CASE EVENT DATE: 20151026
